FAERS Safety Report 15499978 (Version 1)
Quarter: 2018Q4

REPORT INFORMATION
  Report Type: Spontaneous
  Country: CN (occurrence: CN)
  Receive Date: 20181015
  Receipt Date: 20181015
  Transmission Date: 20190205
  Serious: Yes (Hospitalization, Other)
  Sender: FDA-Public Use
  Company Number: CN-PFIZER INC-2018406693

PATIENT
  Age: 42 Year
  Sex: Female
  Weight: 55 kg

DRUGS (3)
  1. PHENOBARBITAL SODIUM. [Suspect]
     Active Substance: PHENOBARBITAL SODIUM
     Indication: EPILEPSY
     Dosage: 0.1 G, 2X/DAY
     Dates: start: 20180724, end: 20180801
  2. CELEBREX [Suspect]
     Active Substance: CELECOXIB
     Indication: JOINT DISLOCATION
     Dosage: 0.2 G, 2X/DAY
     Route: 048
     Dates: start: 20180723, end: 20180724
  3. CELEBREX [Suspect]
     Active Substance: CELECOXIB
     Dosage: 0.2 G, 2X/DAY
     Route: 048
     Dates: start: 20180728, end: 20180801

REACTIONS (3)
  - Epilepsy [Unknown]
  - Rash [Recovered/Resolved]
  - Pruritus [Recovered/Resolved]

NARRATIVE: CASE EVENT DATE: 20180724
